FAERS Safety Report 9853977 (Version 2)
Quarter: 2014Q1

REPORT INFORMATION
  Report Type: Spontaneous
  Country: US (occurrence: US)
  Receive Date: 20140129
  Receipt Date: 20140327
  Transmission Date: 20141002
  Serious: Yes (Other)
  Sender: FDA-Public Use
  Company Number: US-PFIZER INC-2014024546

PATIENT
  Age: 78 Year
  Sex: Female
  Weight: 63.49 kg

DRUGS (2)
  1. CELEBREX [Suspect]
     Indication: ARTHRITIS
     Dosage: 200 MG, DAILY
     Dates: start: 2000
  2. PENTASA [Concomitant]
     Indication: CROHN^S DISEASE
     Dosage: 500 MG, 2X/DAY
     Dates: start: 2000

REACTIONS (2)
  - Foot fracture [Unknown]
  - Fall [Unknown]
